FAERS Safety Report 8186766-6 (Version None)
Quarter: 2012Q1

REPORT INFORMATION
  Report Type: 
  Country: None (occurrence: None)
  Receive Date: 20120306
  Receipt Date: 20120306
  Transmission Date: 20120608
  Serious: Yes (Other)
  Sender: FDA-Public Use
  Company Number: None

PATIENT
  Age: 43 Year
  Sex: Male
  Weight: 74.842 kg

DRUGS (1)
  1. VIRAMUNE XR [Suspect]
     Dosage: 400.0 MG
     Route: 048
     Dates: start: 20111210, end: 20120203

REACTIONS (3)
  - PRODUCT FORMULATION ISSUE [None]
  - NO THERAPEUTIC RESPONSE [None]
  - MEDICATION RESIDUE [None]
